FAERS Safety Report 19958440 (Version 1)
Quarter: 2021Q4

REPORT INFORMATION
  Report Type: Spontaneous
  Country: US (occurrence: US)
  Receive Date: 20211015
  Receipt Date: 20211015
  Transmission Date: 20220303
  Serious: No
  Sender: FDA-Public Use
  Company Number: US-PFIZER INC-202101291350

PATIENT
  Age: 59 Year
  Sex: Female
  Weight: 90.26 kg

DRUGS (1)
  1. PREMARIN [Suspect]
     Active Substance: ESTROGENS, CONJUGATED
     Indication: Vulvovaginal discomfort
     Dosage: UNK

REACTIONS (4)
  - Allergic reaction to excipient [Unknown]
  - Off label use [Unknown]
  - Pruritus [Unknown]
  - Urticaria [Unknown]
